FAERS Safety Report 7135361-6 (Version None)
Quarter: 2010Q4

REPORT INFORMATION
  Report Type: 
  Country: None (occurrence: None)
  Receive Date: 20101203
  Receipt Date: 20101130
  Transmission Date: 20110411
  Serious: Yes (Other)
  Sender: FDA-Public Use
  Company Number: FR-PFIZER INC-2010161548

PATIENT
  Age: 35 Year
  Sex: Female

DRUGS (2)
  1. CHAMPIX [Suspect]
     Dosage: UNK
     Dates: start: 20100728, end: 20100915
  2. CHAMPIX [Suspect]
     Dosage: UNK
     Dates: start: 20101101

REACTIONS (9)
  - CHEST PAIN [None]
  - DEPRESSION [None]
  - HYPOTHYROIDISM [None]
  - INSOMNIA [None]
  - MUSCLE SPASMS [None]
  - MUSCULOSKELETAL CHEST PAIN [None]
  - NIGHTMARE [None]
  - SUICIDAL IDEATION [None]
  - THYROIDITIS [None]
